FAERS Safety Report 6087529-8 (Version None)
Quarter: 2009Q1

REPORT INFORMATION
  Report Type: 
  Country: None (occurrence: None)
  Receive Date: 20090219
  Receipt Date: 20090211
  Transmission Date: 20090719
  Serious: Yes (Death, Life-Threatening, Hospitalization)
  Sender: FDA-Public Use
  Company Number: 8033376

PATIENT
  Age: 13 Year
  Sex: Male
  Weight: 42.27 kg

DRUGS (4)
  1. KEPPRA [Suspect]
     Indication: CONVULSION
     Dosage: 1500 MG 2/D PO
     Route: 048
  2. KEPPRA [Suspect]
     Indication: CONVULSION
     Dosage: IV
     Route: 042
  3. MORPHINE [Concomitant]
  4. DEXAMETHASONE [Concomitant]

REACTIONS (4)
  - CONVULSION [None]
  - DYSPHAGIA [None]
  - GENERAL PHYSICAL HEALTH DETERIORATION [None]
  - POSTURE ABNORMAL [None]
